FAERS Safety Report 10057177 (Version 1)
Quarter: 2014Q2

REPORT INFORMATION
  Report Type: Report from Study
  Country: ZW (occurrence: ZW)
  Receive Date: 20140403
  Receipt Date: 20140403
  Transmission Date: 20141212
  Serious: Yes (Death, Hospitalization, Other)
  Sender: FDA-Public Use
  Company Number: ZW-BRISTOL-MYERS SQUIBB COMPANY-20571600

PATIENT
  Age: 37 Year
  Sex: Female
  Weight: 43.5 kg

DRUGS (4)
  1. STOCRIN CAPS [Suspect]
     Indication: HIV INFECTION
     Route: 048
     Dates: start: 20131010
  2. EMTRICITABINE/TENOFOVIR DISOPROXIL FUMARATE [Suspect]
     Indication: HIV INFECTION
     Dosage: 1DF:200/300 MG TABS
     Route: 048
     Dates: start: 20131010
  3. ETHAMBUTOL HCL [Suspect]
     Indication: HIV INFECTION
     Route: 048
     Dates: start: 20131010
  4. ISONIAZID+PYRAZINAMIDE+RIFAMPICIN [Suspect]
     Indication: HIV INFECTION
     Dosage: 1DF:150/800/550 MG
     Route: 048
     Dates: start: 20131010

REACTIONS (3)
  - Gastroenteritis [Fatal]
  - Dehydration [Fatal]
  - Haemoglobin decreased [Unknown]
